FAERS Safety Report 24592572 (Version 8)
Quarter: 2025Q4

REPORT INFORMATION
  Report Type: Report from Study
  Country: US (occurrence: US)
  Receive Date: 20241108
  Receipt Date: 20251105
  Transmission Date: 20260118
  Serious: No
  Sender: TAKEDA
  Company Number: US-TAKEDA-2023TUS019138

PATIENT
  Sex: Female

DRUGS (4)
  1. TEDUGLUTIDE [Suspect]
     Active Substance: TEDUGLUTIDE
     Indication: Illness
     Dosage: 0.31 MILLIGRAM, QD
     Dates: start: 20230101
  2. TEDUGLUTIDE [Suspect]
     Active Substance: TEDUGLUTIDE
     Indication: Short-bowel syndrome
     Dosage: 0.31 MILLILITER, QD
     Dates: start: 20230118
  3. TEDUGLUTIDE [Suspect]
     Active Substance: TEDUGLUTIDE
     Dosage: 0.31 MILLILITER, QD
     Dates: start: 20230124
  4. TEDUGLUTIDE [Suspect]
     Active Substance: TEDUGLUTIDE
     Dosage: 0.31 MILLIGRAM, QD

REACTIONS (13)
  - Needle issue [Unknown]
  - Stoma site discomfort [Unknown]
  - Stoma site erythema [Unknown]
  - Stoma site pain [Unknown]
  - Insurance issue [Unknown]
  - Product use issue [Unknown]
  - Illness [Unknown]
  - Device malfunction [Unknown]
  - Multiple use of single-use product [Unknown]
  - Device breakage [Unknown]
  - Flatulence [Unknown]
  - Abdominal distension [Unknown]
  - Abdominal pain [Unknown]
